FAERS Safety Report 9822059 (Version 1)
Quarter: 2014Q1

REPORT INFORMATION
  Report Type: Spontaneous
  Country: ES (occurrence: ES)
  Receive Date: 20140116
  Receipt Date: 20140116
  Transmission Date: 20141002
  Serious: Yes (Other)
  Sender: FDA-Public Use
  Company Number: ES-MYLANLABS-2014S1000406

PATIENT
  Age: 69 Year
  Sex: Male

DRUGS (6)
  1. LITHIUM [Suspect]
     Indication: BIPOLAR DISORDER
     Dosage: 1200MG/DAY; DOSE STABLE FOR THE LAST YEAR
     Route: 065
  2. LITHIUM [Suspect]
     Indication: BIPOLAR DISORDER
     Dosage: DOSE UNSPECIFIED; CURRENTLY 1200MG/DAY
     Route: 065
  3. ENALAPRIL [Concomitant]
     Dosage: 20MG/DAY
     Route: 065
  4. ATORVASTATIN [Concomitant]
     Dosage: 40MG/DAY
     Route: 065
  5. ASPIRIN [Concomitant]
     Dosage: 100MG/DAY
     Route: 065
  6. ALPRAZOLAM [Concomitant]
     Dosage: 4MG/DAY
     Route: 065

REACTIONS (2)
  - Nephrogenic diabetes insipidus [Recovering/Resolving]
  - Hypernatraemia [Recovered/Resolved]
